FAERS Safety Report 21816410 (Version 1)
Quarter: 2023Q1

REPORT INFORMATION
  Report Type: Spontaneous
  Country: US (occurrence: US)
  Receive Date: 20230104
  Receipt Date: 20230104
  Transmission Date: 20230417
  Serious: Yes (Life-Threatening, Hospitalization, Other)
  Sender: FDA-Public Use
  Company Number: US-MYLANLABS-2022M1143162

PATIENT
  Age: 15 Year
  Sex: Male

DRUGS (4)
  1. SORAFENIB [Suspect]
     Active Substance: SORAFENIB
     Indication: Desmoid tumour
     Dosage: 400 MILLIGRAM, QD
     Route: 065
  2. SORAFENIB [Suspect]
     Active Substance: SORAFENIB
     Dosage: DRUG DISCONTINUED AND LATER RE-INITIATED
     Route: 065
  3. TAMOXIFEN [Suspect]
     Active Substance: TAMOXIFEN
     Indication: Desmoid tumour
     Dosage: 120 MILLIGRAM, QD
     Route: 065
  4. SULINDAC [Suspect]
     Active Substance: SULINDAC
     Indication: Desmoid tumour
     Dosage: 150 MILLIGRAM, BID
     Route: 065

REACTIONS (5)
  - Tumour rupture [Recovering/Resolving]
  - Drug ineffective [Unknown]
  - Abscess [Recovering/Resolving]
  - Toxicity to various agents [Recovering/Resolving]
  - Off label use [Unknown]
